FAERS Safety Report 18018164 (Version 1)
Quarter: 2020Q3

REPORT INFORMATION
  Report Type: Spontaneous
  Country: US (occurrence: US)
  Receive Date: 20200713
  Receipt Date: 20200713
  Transmission Date: 20201103
  Serious: Yes (Other)
  Sender: FDA-Public Use
  Company Number: None

PATIENT
  Age: 26 Year
  Sex: Male
  Weight: 106.4 kg

DRUGS (11)
  1. AROMATIC INHALER [Concomitant]
     Dates: start: 20200710, end: 20200711
  2. TOCILIZUMAB. [Concomitant]
     Active Substance: TOCILIZUMAB
     Dates: start: 20200712, end: 20200712
  3. ONDANSETRON [Concomitant]
     Active Substance: ONDANSETRON
     Dates: start: 20200710
  4. ENOXAPERIN [Concomitant]
     Dates: start: 20200710, end: 20200712
  5. IPRATROPIUM BROMIDE. [Concomitant]
     Active Substance: IPRATROPIUM BROMIDE
     Dates: start: 20200710
  6. REMDESIVIR. [Suspect]
     Active Substance: REMDESIVIR
     Indication: COVID-19
     Route: 041
     Dates: start: 20200711, end: 20200712
  7. ALBUTEROL. [Concomitant]
     Active Substance: ALBUTEROL
     Dates: start: 20200710
  8. DOXYCYCLINE. [Concomitant]
     Active Substance: DOXYCYCLINE
     Dates: start: 20200711
  9. DEXAMETHASONE. [Concomitant]
     Active Substance: DEXAMETHASONE
     Dates: start: 20200711
  10. MOMETASONE [Concomitant]
     Active Substance: MOMETASONE
     Dates: start: 20200710
  11. ACETAMINOPHEN. [Concomitant]
     Active Substance: ACETAMINOPHEN
     Dates: start: 20200710, end: 20200712

REACTIONS (3)
  - Aspartate aminotransferase increased [None]
  - Hepatic enzyme increased [None]
  - Alanine aminotransferase increased [None]

NARRATIVE: CASE EVENT DATE: 20200713
